FAERS Safety Report 8419472-0 (Version None)
Quarter: 2012Q2

REPORT INFORMATION
  Report Type: 
  Country: None (occurrence: None)
  Receive Date: 20120607
  Receipt Date: 20120528
  Transmission Date: 20120825
  Serious: Yes (Other)
  Sender: FDA-Public Use
  Company Number: TH-ELI_LILLY_AND_COMPANY-TH201205010082

PATIENT
  Age: 69 Year
  Sex: Male

DRUGS (2)
  1. CYMBALTA [Suspect]
     Indication: DEPRESSION
     Dosage: 30 MG, QD
  2. CYMBALTA [Suspect]
     Dosage: 60 MG, QD

REACTIONS (2)
  - LEG AMPUTATION [None]
  - POST PROCEDURAL HAEMATOMA [None]
